FAERS Safety Report 25586620 (Version 1)
Quarter: 2025Q3

REPORT INFORMATION
  Report Type: Report from Study
  Country: AR (occurrence: AR)
  Receive Date: 20250721
  Receipt Date: 20250721
  Transmission Date: 20251021
  Serious: Yes (Hospitalization)
  Sender: BIOGEN
  Company Number: AR-BIOGEN-2025BI01317695

PATIENT
  Age: 38 Year
  Sex: Female

DRUGS (1)
  1. TYSABRI [Suspect]
     Active Substance: NATALIZUMAB
     Indication: Multiple sclerosis
     Dosage: LAST ADMIN: 25JUN2025
     Route: 050
     Dates: start: 20240523

REACTIONS (1)
  - Optic neuritis [Recovered/Resolved]

NARRATIVE: CASE EVENT DATE: 20250711
